FAERS Safety Report 25588972 (Version 1)
Quarter: 2025Q3

REPORT INFORMATION
  Report Type: Report from Study
  Country: US (occurrence: US)
  Receive Date: 20250722
  Receipt Date: 20250722
  Transmission Date: 20251020
  Serious: Yes (Hospitalization)
  Sender: ALEXION PHARMACEUTICALS
  Company Number: US-AstraZeneca-CH-00910917A

PATIENT
  Sex: Female
  Weight: 73 kg

DRUGS (8)
  1. CAPIVASERTIB [Suspect]
     Active Substance: CAPIVASERTIB
     Indication: Breast cancer female
     Dosage: 400 MILLIGRAM, BID
     Dates: start: 202503
  2. ACETAMINOPHEN [Concomitant]
     Active Substance: ACETAMINOPHEN
     Route: 065
  3. CEFDINIR [Concomitant]
     Active Substance: CEFDINIR
     Route: 065
  4. IMODIUM [Concomitant]
     Active Substance: LOPERAMIDE HYDROCHLORIDE
     Route: 065
  5. MIDODRINE [Concomitant]
     Active Substance: MIDODRINE
     Route: 065
  6. CALCIUM\VITAMIN D [Concomitant]
     Active Substance: CALCIUM\VITAMIN D
     Route: 065
  7. OMEPRAZOLE [Concomitant]
     Active Substance: OMEPRAZOLE
     Route: 065
  8. ONDANSETRON [Concomitant]
     Active Substance: ONDANSETRON
     Route: 065

REACTIONS (5)
  - Diarrhoea [Recovering/Resolving]
  - Haematological infection [Recovered/Resolved]
  - Urinary tract infection [Recovering/Resolving]
  - Hypotension [Recovering/Resolving]
  - Product dose omission issue [Recovering/Resolving]
